FAERS Safety Report 5656803-9 (Version None)
Quarter: 2008Q1

REPORT INFORMATION
  Report Type: 
  Country: None (occurrence: None)
  Receive Date: 20080310
  Receipt Date: 20080225
  Transmission Date: 20080703
  Serious: Yes (Other)
  Sender: FDA-Public Use
  Company Number: GB-AMGEN-UK267729

PATIENT
  Sex: Female

DRUGS (10)
  1. ARANESP [Suspect]
     Indication: RENAL FAILURE CHRONIC
     Route: 058
     Dates: start: 20080123
  2. INSULIN [Concomitant]
  3. FUROSEMIDE [Concomitant]
  4. TRAMADOL HCL [Concomitant]
  5. ATORVASTATIN CALCIUM [Concomitant]
  6. AMITRIPTYLINE HCL [Concomitant]
  7. CETIRIZINE HCL [Concomitant]
  8. PAROXETINE HCL [Concomitant]
  9. ALFACALCIDOL [Concomitant]
  10. EVENING PRIMROSE OIL [Concomitant]

REACTIONS (1)
  - BLOOD GLUCOSE DECREASED [None]
